FAERS Safety Report 21995538 (Version 8)
Quarter: 2025Q2

REPORT INFORMATION
  Report Type: Spontaneous
  Country: US (occurrence: US)
  Receive Date: 20230215
  Receipt Date: 20250603
  Transmission Date: 20250716
  Serious: Yes (Other)
  Sender: SANOFI AVENTIS
  Company Number: US-SA-SAC20230214000192

PATIENT
  Age: 56 Year
  Sex: Male

DRUGS (13)
  1. DUPIXENT [Suspect]
     Active Substance: DUPILUMAB
     Indication: Asthma
     Dosage: 300 MG, QOW
     Route: 058
     Dates: start: 20210827
  2. ALBUTEROL SULFATE [Concomitant]
     Active Substance: ALBUTEROL SULFATE
     Indication: Asthma
  3. EPINEPHRINE [Concomitant]
     Active Substance: EPINEPHRINE
  4. DICLOFENAC [Concomitant]
     Active Substance: DICLOFENAC
  5. FAMOTIDINE [Concomitant]
     Active Substance: FAMOTIDINE
  6. ATORVASTATIN [Concomitant]
     Active Substance: ATORVASTATIN
  7. METFORMIN HYDROCHLORIDE [Concomitant]
     Active Substance: METFORMIN HYDROCHLORIDE
  8. FLUTICASONE [Concomitant]
     Active Substance: FLUTICASONE
  9. MONTELUKAST [Concomitant]
     Active Substance: MONTELUKAST
  10. LORATADINE [Concomitant]
     Active Substance: LORATADINE
  11. WIXELA INHUB [Concomitant]
     Active Substance: FLUTICASONE PROPIONATE\SALMETEROL XINAFOATE
  12. NAPROXEN [Concomitant]
     Active Substance: NAPROXEN
  13. SPIRIVA [Concomitant]
     Active Substance: TIOTROPIUM BROMIDE MONOHYDRATE
     Route: 055

REACTIONS (10)
  - Diabetes mellitus [Unknown]
  - Impaired quality of life [Unknown]
  - Hypoaesthesia [Unknown]
  - Oropharyngeal pain [Unknown]
  - Pain in extremity [Unknown]
  - Eye irritation [Unknown]
  - Oral herpes [Unknown]
  - Eye pruritus [Unknown]
  - Asthma [Recovering/Resolving]
  - Drug ineffective [Unknown]
